FAERS Safety Report 4364486-3 (Version None)
Quarter: 2004Q2

REPORT INFORMATION
  Report Type: 
  Country: None (occurrence: None)
  Receive Date: 20040521
  Receipt Date: 20040514
  Transmission Date: 20050107
  Serious: Yes (Death)
  Sender: FDA-Public Use
  Company Number: US-JNJFOC-20040204449

PATIENT
  Age: 80 Year
  Sex: Male

DRUGS (14)
  1. DURAGESIC [Suspect]
     Indication: PAIN
     Dosage: SEE IMAGE
     Dates: start: 20031015, end: 20031023
  2. DURAGESIC [Suspect]
     Indication: PAIN
     Dosage: SEE IMAGE
     Dates: end: 20040123
  3. DURAGESIC [Suspect]
     Indication: PAIN
     Dosage: SEE IMAGE
     Dates: start: 20040123, end: 20040208
  4. DURAGESIC [Suspect]
     Indication: PAIN
     Dosage: SEE IMAGE
     Dates: start: 20031023
  5. DECADRON [Concomitant]
  6. GLUCOPHAGE [Concomitant]
  7. LOMOTIL (METFORMIN HYDROCHLORIDE) [Concomitant]
  8. HYDROCODONE (HYDROCODONE) [Concomitant]
  9. ALBUTEROL [Concomitant]
  10. ROBITUSSIN (GUAIFENESIN) [Concomitant]
  11. SCOPOLAMINE (HYOSCINE) [Concomitant]
  12. MUCOMIST (ACETYLCYSTEINE) [Concomitant]
  13. MORPHINE SULFATE [Concomitant]
  14. MORPHINE [Concomitant]

REACTIONS (1)
  - PROSTATE CANCER METASTATIC [None]
